FAERS Safety Report 6042308 (Version 2)
Quarter: 2020Q3

REPORT INFORMATION
  Report Type: Report from Study
  Country: CL (occurrence: CL)
  Receive Date: 20060510
  Receipt Date: 20060524
  Transmission Date: 20201104
  Serious: Yes (Death, Hospitalization)
  Sender: FDA-Public Use
  Company Number: CL-ROCHE-435811

PATIENT
  Age: 57 Year
  Sex: Male
  Weight: 57 kg

DRUGS (16)
  1. CITALOPRAM [Concomitant]
     Active Substance: CITALOPRAM HYDROBROMIDE
     Dosage: DRUG REPORTED AS CITALOPRON
     Dates: start: 20050610, end: 20060224
  2. IBANDRONIC ACID. [Suspect]
     Active Substance: IBANDRONIC ACID
     Dosage: INTRAVENOUS INFUSION GIVEN ON DAYS 1, 2 AND 3
     Route: 042
     Dates: start: 20051228, end: 20051230
  3. ATENOLOL. [Concomitant]
     Active Substance: ATENOLOL
     Dates: start: 20050610, end: 20060207
  4. ALLOPURINOL. [Concomitant]
     Active Substance: ALLOPURINOL
     Dates: start: 20050610, end: 20060207
  5. CALCIUM [Concomitant]
     Active Substance: CALCIUM
     Dates: start: 20051228, end: 20060117
  6. IBANDRONIC ACID. [Suspect]
     Active Substance: IBANDRONIC ACID
     Dosage: INTRAVENOUS DOSE, STOPPED ON 7 FEBRUARY 2006
     Route: 042
     Dates: start: 20060118, end: 20060210
  7. MEGACE [Concomitant]
     Active Substance: MEGESTROL ACETATE
     Dates: start: 20051024, end: 20060224
  8. OMEPRAZOLE. [Concomitant]
     Active Substance: OMEPRAZOLE
     Dates: start: 20050610, end: 20060207
  9. VITAMIN D2 [Concomitant]
     Active Substance: ERGOCALCIFEROL
     Dates: start: 20051228, end: 20060117
  10. CALCIUM/VITAMIN D [Concomitant]
     Active Substance: CALCIUM\VITAMIN D
     Dosage: CALCIUM 500 UNITS, VITAMIN D 400 UNITS
     Dates: start: 20060118
  11. IBANDRONIC ACID. [Suspect]
     Active Substance: IBANDRONIC ACID
     Dosage: ORAL DOSE, ADMINISTERED DAILY FROM DAY 22, TEMPORARILY INTERUPTED ON 7 FEBRUARY 2006 AND DISCONTINU+
     Route: 048
     Dates: start: 20060118, end: 20060207
  12. MORPHINE [Concomitant]
     Active Substance: MORPHINE
     Dates: start: 20050610
  13. CLONAZEPAM. [Concomitant]
     Active Substance: CLONAZEPAM
     Dates: start: 20050207, end: 20060209
  14. ARTREN [Concomitant]
     Active Substance: DICLOFENAC SODIUM
     Dosage: DRUG REPORTED AS ARTREN (DICLOFENAC SODIUM)
     Dates: start: 20050610
  15. ZOPICLONE [Concomitant]
     Active Substance: ZOPICLONE
     Dosage: REPORTED AS ZOMETIC (ZOPICLONE)
     Dates: start: 20050610, end: 20060209
  16. VITAMIN D2 [Concomitant]
     Active Substance: ERGOCALCIFEROL
     Dates: start: 20051228, end: 20060117

REACTIONS (3)
  - Disease progression [Fatal]
  - Anaemia [Recovered/Resolved]
  - Depression [Not Recovered/Not Resolved]

NARRATIVE: CASE EVENT DATE: 20060202
